FAERS Safety Report 7154488-6 (Version None)
Quarter: 2010Q4

REPORT INFORMATION
  Report Type: 
  Country: None (occurrence: None)
  Receive Date: 20101213
  Receipt Date: 20101202
  Transmission Date: 20110411
  Serious: Yes (Hospitalization)
  Sender: FDA-Public Use
  Company Number: MY-BRISTOL-MYERS SQUIBB COMPANY-15437312

PATIENT
  Age: 50 Year
  Sex: Female
  Weight: 39 kg

DRUGS (7)
  1. CETUXIMAB [Suspect]
     Indication: COLORECTAL CANCER METASTATIC
     Dosage: INF:4;STRENGTH:5MG/ML.REC.INF ON 20NOV2010. INTRRUPTED ON 2DEC2010
     Route: 042
     Dates: start: 20100907
  2. OXALIPLATIN [Suspect]
     Indication: COLORECTAL CANCER METASTATIC
     Dosage: INF:4;REC.INF ON 20NOV2010. INTRRUPTED ON 2DEC2010
     Route: 042
     Dates: start: 20100907
  3. FLUOROURACIL [Suspect]
     Indication: COLORECTAL CANCER METASTATIC
     Dosage: INF:4;REC.INF ON 20NOV2010. INTRRUPTED ON 2DEC2010.400MG/M2 BOLUS, 2400MG/M2 CONTINUES INFU
     Route: 042
     Dates: start: 20100907
  4. FOLINIC ACID [Suspect]
     Indication: COLORECTAL CANCER METASTATIC
     Dosage: INF:4; REC.INF ON 20NOV2010. INTRRUPTED ON 2DEC2010
     Route: 042
     Dates: start: 20100907
  5. CHLORPHENIRAMINE [Concomitant]
     Dosage: AND ON 20NOV2010
     Route: 042
     Dates: start: 20101102
  6. ONDANSETRON [Concomitant]
     Route: 042
     Dates: start: 20101113
  7. HYDROCORTISONE [Concomitant]
     Route: 042
     Dates: start: 20101120

REACTIONS (6)
  - DIARRHOEA [None]
  - HAEMOGLOBIN DECREASED [None]
  - HYPOKALAEMIA [None]
  - HYPONATRAEMIA [None]
  - NEUTROPHIL COUNT DECREASED [None]
  - SMALL INTESTINAL OBSTRUCTION [None]
